FAERS Safety Report 5590782-8 (Version None)
Quarter: 2008Q1

REPORT INFORMATION
  Report Type: 
  Country: None (occurrence: None)
  Receive Date: 20080110
  Receipt Date: 20080103
  Transmission Date: 20080703
  Serious: Yes (Death, Hospitalization)
  Sender: FDA-Public Use
  Company Number: 163-C5013-08010194

PATIENT
  Age: 68 Year
  Sex: Male
  Weight: 106.3 kg

DRUGS (1)
  1. CC-5013 (LENALIDOMIDE) (CAPSULES) [Suspect]
     Indication: LYMPHOMA
     Dosage: 25 MG, ORAL
     Route: 048
     Dates: start: 20071030, end: 20071210

REACTIONS (2)
  - ASTHENIA [None]
  - DEHYDRATION [None]
